FAERS Safety Report 12574927 (Version 1)
Quarter: 2016Q3

REPORT INFORMATION
  Report Type: Spontaneous
  Country: US (occurrence: US)
  Receive Date: 20160720
  Receipt Date: 20160720
  Transmission Date: 20161109
  Serious: No
  Sender: FDA-Public Use
  Company Number: US-ASTELLAS-2015US036606

PATIENT
  Age: 85 Year
  Sex: Female

DRUGS (2)
  1. VESICARE [Suspect]
     Active Substance: SOLIFENACIN SUCCINATE
     Indication: POLLAKIURIA
     Route: 065
     Dates: start: 2014
  2. SENOKOT [Concomitant]
     Active Substance: SENNOSIDES
     Indication: ABDOMINAL DISCOMFORT
     Dosage: 2 DF, AT BEDTIME (NIGHT)
     Route: 065

REACTIONS (6)
  - Dry mouth [Unknown]
  - Micturition urgency [Not Recovered/Not Resolved]
  - Drug ineffective [Unknown]
  - Lip dry [Unknown]
  - Nocturia [Unknown]
  - Poor quality sleep [Not Recovered/Not Resolved]
